FAERS Safety Report 7019955-4 (Version None)
Quarter: 2010Q3

REPORT INFORMATION
  Report Type: 
  Country: None (occurrence: None)
  Receive Date: 20100929
  Receipt Date: 20100920
  Transmission Date: 20110219
  Serious: Yes (Other)
  Sender: FDA-Public Use
  Company Number: US-JNJFOC-20100907630

PATIENT
  Age: 26 Year
  Sex: Male

DRUGS (8)
  1. HALOPERIDOL [Suspect]
     Indication: THINKING ABNORMAL
  2. HALOPERIDOL [Suspect]
  3. HALOPERIDOL [Suspect]
  4. HALOPERIDOL [Suspect]
     Indication: PARANOIA
  5. HALOPERIDOL [Suspect]
  6. HALOPERIDOL [Suspect]
  7. QUETIAPINE [Suspect]
     Indication: THINKING ABNORMAL
     Route: 065
  8. QUETIAPINE [Suspect]
     Indication: PARANOIA
     Route: 065

REACTIONS (3)
  - BLUNTED AFFECT [None]
  - PSYCHOMOTOR RETARDATION [None]
  - SALIVARY HYPERSECRETION [None]
